FAERS Safety Report 6195117-8 (Version None)
Quarter: 2009Q2

REPORT INFORMATION
  Report Type: 
  Country: None (occurrence: None)
  Receive Date: 20090519
  Receipt Date: 20090504
  Transmission Date: 20091009
  Serious: Yes (Other)
  Sender: FDA-Public Use
  Company Number: DE-ROCHE-631448

PATIENT
  Age: 34 Year
  Sex: Female

DRUGS (1)
  1. ROFERON-A [Suspect]
     Dosage: DOSE: 3 MILLION UNITS
     Route: 065
     Dates: start: 20080901

REACTIONS (2)
  - AUTOANTIBODY POSITIVE [None]
  - BLOOD THYROID STIMULATING HORMONE DECREASED [None]
